FAERS Safety Report 23915250 (Version 1)
Quarter: 2024Q2

REPORT INFORMATION
  Report Type: Spontaneous
  Country: US (occurrence: None)
  Receive Date: 20240529
  Receipt Date: 20240529
  Transmission Date: 20240716
  Serious: Yes (Death)
  Sender: FDA-Public Use
  Company Number: None

PATIENT
  Age: 70 Year
  Sex: Male

DRUGS (10)
  1. EVEROLIMUS [Suspect]
     Active Substance: EVEROLIMUS
     Indication: Renal transplant
     Dosage: FREQUENCY : TWICE A DAY;?
     Route: 048
     Dates: start: 20230919, end: 20240524
  2. DEXAMETHASONE [Concomitant]
     Active Substance: DEXAMETHASONE
  3. AMLODIPINE [Concomitant]
     Active Substance: AMLODIPINE BESYLATE
  4. enoxaparen [Concomitant]
  5. IRBESARTAN [Concomitant]
     Active Substance: IRBESARTAN
  6. CABOMETYX [Concomitant]
     Active Substance: CABOZANTINIB S-MALATE
  7. trajdenta [Concomitant]
  8. VITAMIN D [Concomitant]
     Active Substance: VITAMIN D NOS
  9. COLLAGENASE SANTYL [Concomitant]
     Active Substance: COLLAGENASE CLOSTRIDIUM HISTOLYTICUM
  10. MYCOPHENOLATE [Concomitant]

REACTIONS (1)
  - Hospice care [None]

NARRATIVE: CASE EVENT DATE: 20240524
